FAERS Safety Report 22176373 (Version 2)
Quarter: 2023Q2

REPORT INFORMATION
  Report Type: Report from Study
  Country: US (occurrence: US)
  Receive Date: 20230405
  Receipt Date: 20230407
  Transmission Date: 20230721
  Serious: Yes (Other)
  Sender: FDA-Public Use
  Company Number: US-UCBSA-2023016953

PATIENT
  Age: 84 Year
  Sex: Female

DRUGS (1)
  1. ROTIGOTINE [Suspect]
     Active Substance: ROTIGOTINE
     Indication: Parkinson^s disease
     Dosage: 2 MILLIGRAM, ONCE DAILY (QD)
     Route: 062

REACTIONS (2)
  - Fall [Not Recovered/Not Resolved]
  - Wrist fracture [Not Recovered/Not Resolved]

NARRATIVE: CASE EVENT DATE: 20230301
